FAERS Safety Report 22292635 (Version 1)
Quarter: 2023Q2

REPORT INFORMATION
  Report Type: Report from Study
  Country: JP (occurrence: JP)
  Receive Date: 20230508
  Receipt Date: 20230508
  Transmission Date: 20230721
  Serious: Yes (Death, Hospitalization)
  Sender: FDA-Public Use
  Company Number: JP-JNJFOC-20230300118

PATIENT
  Age: 61 Year
  Sex: Male
  Weight: 60 kg

DRUGS (8)
  1. IMBRUVICA [Suspect]
     Active Substance: IBRUTINIB
     Indication: Chronic lymphocytic leukaemia recurrent
     Dosage: IBRUTINIB:140MG
     Route: 048
     Dates: start: 20180720, end: 20191225
  2. VENETOCLAX [Concomitant]
     Active Substance: VENETOCLAX
     Indication: Chronic lymphocytic leukaemia recurrent
     Dosage: DOSE UNKNOWN
     Route: 065
     Dates: start: 20200109, end: 20200525
  3. VENETOCLAX [Concomitant]
     Active Substance: VENETOCLAX
     Indication: Chronic lymphocytic leukaemia recurrent
     Dosage: DOSE UNKNOWN
     Route: 065
     Dates: start: 20200109, end: 20200525
  4. SODIUM BICARBONATE [Concomitant]
     Active Substance: SODIUM BICARBONATE
     Indication: Prophylaxis
     Dosage: DOSE FORM- PER ORAL
     Route: 048
  5. AMLODIPINE BESYLATE [Concomitant]
     Active Substance: AMLODIPINE BESYLATE
     Indication: Hypertension
     Dosage: AMLODIPINE BESILATE?DOSE FORM-PERORAL MEDICINE
     Route: 048
  6. FEBUXOSTAT [Concomitant]
     Active Substance: FEBUXOSTAT
     Indication: Prophylaxis
     Dosage: FEBUXOSTAT?DOSE FORM-PERORAL MEDICINE
     Route: 048
  7. BISOPROLOL FUMARATE [Concomitant]
     Active Substance: BISOPROLOL FUMARATE
     Indication: Hypertension
     Dosage: BISOPROLOL FUMARATE?PATIENT ROA-PERORAL MEDICINE
     Route: 048
  8. NEXIUM [Concomitant]
     Active Substance: ESOMEPRAZOLE MAGNESIUM
     Indication: Prophylaxis
     Dosage: ESOMEPRAZOLE MAGNESIUM HYDRATE?DOSE FORM-PERORAL MEDICINE
     Route: 048

REACTIONS (4)
  - Chronic lymphocytic leukaemia [Fatal]
  - Rash [Recovering/Resolving]
  - Platelet count decreased [Fatal]
  - Epistaxis [Recovering/Resolving]

NARRATIVE: CASE EVENT DATE: 20180728
